FAERS Safety Report 15170390 (Version 2)
Quarter: 2018Q3

REPORT INFORMATION
  Report Type: Report from Study
  Country: CA (occurrence: CA)
  Receive Date: 20180720
  Receipt Date: 20180726
  Transmission Date: 20181010
  Serious: Yes (Death, Other)
  Sender: FDA-Public Use
  Company Number: CA-REGENERON PHARMACEUTICALS, INC.-2018-30507

PATIENT

DRUGS (2)
  1. EYLEA [Suspect]
     Active Substance: AFLIBERCEPT
     Indication: NEOVASCULAR AGE-RELATED MACULAR DEGENERATION
     Dosage: UNK (TOTAL OF 2 INJECTIONS)
     Dates: start: 20180129, end: 20180129
  2. EYLEA [Suspect]
     Active Substance: AFLIBERCEPT
     Dosage: UNK UNK, ONCE (LAST INJECTION)
     Dates: start: 20180312, end: 20180312

REACTIONS (2)
  - Death [Fatal]
  - Ill-defined disorder [Unknown]

NARRATIVE: CASE EVENT DATE: 201805
